FAERS Safety Report 7329155-6 (Version None)
Quarter: 2011Q1

REPORT INFORMATION
  Report Type: 
  Country: None (occurrence: None)
  Receive Date: 20110303
  Receipt Date: 20110218
  Transmission Date: 20110831
  Serious: Yes (Hospitalization)
  Sender: FDA-Public Use
  Company Number: A0734637A

PATIENT
  Age: 54 Year
  Sex: Male
  Weight: 76.4 kg

DRUGS (5)
  1. GLUCOTROL [Concomitant]
     Dates: start: 20040829, end: 20050307
  2. LANTUS [Concomitant]
     Dates: start: 20050601, end: 20081115
  3. GLUCOPHAGE [Concomitant]
     Dates: start: 20001001, end: 20081118
  4. AVANDIA [Suspect]
     Dosage: 8MG PER DAY
     Route: 048
     Dates: start: 20040501, end: 20070501
  5. METFORMIN [Concomitant]
     Dates: start: 20001001, end: 20081118

REACTIONS (4)
  - CORONARY ARTERY DISEASE [None]
  - ARTERIOSCLEROSIS [None]
  - ANGINA UNSTABLE [None]
  - MYOCARDIAL ISCHAEMIA [None]
